FAERS Safety Report 19718550 (Version 3)
Quarter: 2024Q4

REPORT INFORMATION
  Report Type: Report from Study
  Country: FR (occurrence: FR)
  Receive Date: 20210819
  Receipt Date: 20241114
  Transmission Date: 20250115
  Serious: Yes (Life-Threatening, Hospitalization, Other)
  Sender: RANBAXY
  Company Number: FR-SUN PHARMACEUTICAL INDUSTRIES LTD-2021R1-308160

PATIENT
  Age: 3 Year
  Sex: Female

DRUGS (1)
  1. PREGABALIN [Suspect]
     Active Substance: PREGABALIN
     Indication: Accidental exposure to product by child
     Dosage: 75 MILLIGRAM, 300 MG; 21.3 MG/KG
     Route: 048

REACTIONS (5)
  - Coma [Recovered/Resolved]
  - Accidental exposure to product by child [Recovered/Resolved]
  - Ataxia [Recovered/Resolved]
  - Miosis [Recovered/Resolved]
  - Accidental overdose [Recovered/Resolved]
